FAERS Safety Report 9534038 (Version 1)
Quarter: 2013Q3

REPORT INFORMATION
  Report Type: Spontaneous
  Country: DE (occurrence: DE)
  Receive Date: 20130918
  Receipt Date: 20130918
  Transmission Date: 20140515
  Serious: Yes (Other)
  Sender: FDA-Public Use
  Company Number: DE-INCYTE CORPORATION-2013IN002080

PATIENT
  Sex: Female

DRUGS (1)
  1. JAKAVI [Suspect]
     Dosage: UNK UNK UNK
     Route: 065

REACTIONS (1)
  - Weight increased [Unknown]
